FAERS Safety Report 8769898 (Version 2)
Quarter: 2012Q4

REPORT INFORMATION
  Report Type: 
  Country: US (occurrence: US)
  Receive Date: 20120906
  Receipt Date: 20121008
  Transmission Date: 20130627
  Serious: Yes (Hospitalization, Other)
  Sender: FDA-Public Use
  Company Number: US-ELI_LILLY_AND_COMPANY-US201208009089

PATIENT
  Age: 55 Year
  Sex: Male

DRUGS (1)
  1. HUMATROPE [Suspect]
     Indication: BLOOD GROWTH HORMONE DECREASED
     Dosage: 0.05 mg, qd
     Dates: start: 2008

REACTIONS (1)
  - Myocardial infarction [Recovered/Resolved]
